FAERS Safety Report 16442921 (Version 3)
Quarter: 2019Q3

REPORT INFORMATION
  Report Type: Spontaneous
  Country: JP (occurrence: JP)
  Receive Date: 20190617
  Receipt Date: 20190916
  Transmission Date: 20191004
  Serious: Yes (Hospitalization, Other)
  Sender: FDA-Public Use
  Company Number: JP-ALLERGAN-1924699US

PATIENT
  Sex: Female

DRUGS (2)
  1. RISEDRONATE SODIUM - BP [Suspect]
     Active Substance: RISEDRONATE SODIUM
     Indication: PRODUCT USED FOR UNKNOWN INDICATION
     Dosage: 17.5 MG, Q WEEK
     Route: 048
     Dates: end: 2016
  2. LOTRIGA 2G [Suspect]
     Active Substance: OMEGA-3-ACID ETHYL ESTERS
     Indication: PRODUCT USED FOR UNKNOWN INDICATION
     Route: 065

REACTIONS (5)
  - Chronic kidney disease [Unknown]
  - Hepatitis C [Unknown]
  - Osteonecrosis of jaw [Unknown]
  - Hepatic cancer [Unknown]
  - Osteomyelitis [Unknown]
